FAERS Safety Report 4724713-7 (Version None)
Quarter: 2005Q3

REPORT INFORMATION
  Report Type: 
  Country: None (occurrence: None)
  Receive Date: 20050720
  Receipt Date: 20050720
  Transmission Date: 20060218
  Serious: No
  Sender: FDA-Public Use
  Company Number: None

PATIENT
  Age: 15 Year
  Sex: Male
  Weight: 77.1115 kg

DRUGS (1)
  1. SOTRET [Suspect]
     Indication: ACNE CYSTIC
     Dosage: 1 CAPSULE BY MOUTH PER DAY
     Dates: start: 20050318, end: 20050319

REACTIONS (3)
  - ANXIETY [None]
  - DYSPNOEA [None]
  - HYPERHIDROSIS [None]
